FAERS Safety Report 9333399 (Version 1)
Quarter: 2013Q2

REPORT INFORMATION
  Report Type: Spontaneous
  Country: FR (occurrence: FR)
  Receive Date: 20130606
  Receipt Date: 20130606
  Transmission Date: 20140414
  Serious: Yes (Hospitalization)
  Sender: FDA-Public Use
  Company Number: FR-SANOFI-AVENTIS-2013SA054541

PATIENT
  Age: 83 Year
  Sex: Male
  Weight: 28 kg

DRUGS (6)
  1. LASILIX [Suspect]
     Indication: PRODUCT USED FOR UNKNOWN INDICATION
     Route: 048
  2. COLCHICINE [Suspect]
     Indication: GOUT
     Dosage: DOSE: 2 MG THE FIRST DAY, THEN 1 MG DAILY FOLLOWED BY 1MG EVERY2 DAYS
     Route: 048
     Dates: start: 20130318, end: 20130404
  3. ADENURIC [Suspect]
     Indication: GOUT
     Route: 048
     Dates: start: 20130327, end: 20130404
  4. PREVISCAN [Concomitant]
     Indication: HEART VALVE REPLACEMENT
  5. KENZEN [Concomitant]
  6. LASIX [Concomitant]

REACTIONS (8)
  - Fatigue [Not Recovered/Not Resolved]
  - Dyspnoea [Recovered/Resolved]
  - Abdominal pain [Recovered/Resolved]
  - Leukopenia [Recovered/Resolved]
  - Nausea [Recovered/Resolved]
  - Vomiting [Recovered/Resolved]
  - Thrombocytopenia [Recovered/Resolved]
  - Renal failure acute [Not Recovered/Not Resolved]
